FAERS Safety Report 18712700 (Version 1)
Quarter: 2021Q1

REPORT INFORMATION
  Report Type: Spontaneous
  Country: NZ (occurrence: NZ)
  Receive Date: 20210107
  Receipt Date: 20210107
  Transmission Date: 20210419
  Serious: Yes (Other)
  Sender: FDA-Public Use
  Company Number: NZ-MYLANLABS-2018M1075378

PATIENT

DRUGS (1)
  1. ENLAFAX XR [Suspect]
     Active Substance: VENLAFAXINE HYDROCHLORIDE
     Indication: PRODUCT USED FOR UNKNOWN INDICATION
     Dosage: UNK (ONLY FOR THREE WEEKS)
     Dates: start: 2017

REACTIONS (6)
  - Withdrawal syndrome [Unknown]
  - Suicidal behaviour [Unknown]
  - General physical health deterioration [Unknown]
  - Depression [Unknown]
  - Product substitution issue [Unknown]
  - Anger [Unknown]

NARRATIVE: CASE EVENT DATE: 2017
